FAERS Safety Report 7422760-8 (Version None)
Quarter: 2011Q2

REPORT INFORMATION
  Report Type: 
  Country: None (occurrence: None)
  Receive Date: 20110419
  Receipt Date: 20110412
  Transmission Date: 20111010
  Serious: Yes (Death, Other)
  Sender: FDA-Public Use
  Company Number: US-AMGEN-USASP2011018749

PATIENT
  Sex: Female
  Weight: 45.805 kg

DRUGS (5)
  1. VINCRISTINE [Concomitant]
  2. NPLATE [Suspect]
     Indication: IDIOPATHIC THROMBOCYTOPENIC PURPURA
     Dosage: 414 A?G, UNK
     Dates: start: 20090707, end: 20100810
  3. IVIGLOB-EX [Concomitant]
  4. RITUXIMAB [Concomitant]
     Dosage: UNK
     Dates: start: 20060921
  5. CORTICOSTEROIDS [Concomitant]
     Dosage: UNK
     Dates: start: 20060921

REACTIONS (3)
  - DISEASE PROGRESSION [None]
  - DRUG INEFFECTIVE [None]
  - NEOPLASM MALIGNANT [None]
